FAERS Safety Report 5280199-8 (Version None)
Quarter: 2007Q1

REPORT INFORMATION
  Report Type: 
  Country: None (occurrence: None)
  Receive Date: 20070329
  Receipt Date: 20070320
  Transmission Date: 20070707
  Serious: Yes (Other)
  Sender: FDA-Public Use
  Company Number: AU-ROCHE-472893

PATIENT
  Age: 21 Year
  Sex: Male
  Weight: 63 kg

DRUGS (2)
  1. PEG-INTERFERON ALFA 2A (RO 25-8310) [Suspect]
     Dosage: FORM = INJECTION DATE OF LAST DOSE PRIOR TO SAE = 18 AUGUST 2006
     Route: 058
     Dates: start: 20060310, end: 20060818
  2. BUPRENORPHINE HCL [Concomitant]
     Dates: start: 20060415

REACTIONS (1)
  - MUSCLE TWITCHING [None]
